FAERS Safety Report 17852374 (Version 3)
Quarter: 2020Q3

REPORT INFORMATION
  Report Type: Spontaneous
  Country: DE (occurrence: DE)
  Receive Date: 20200603
  Receipt Date: 20200818
  Transmission Date: 20201103
  Serious: Yes (Other)
  Sender: FDA-Public Use
  Company Number: DE-BIOGEN-2020BI00882358

PATIENT
  Age: 54 Year
  Sex: Female
  Weight: 100 kg

DRUGS (14)
  1. GABAPENTIN. [Concomitant]
     Active Substance: GABAPENTIN
     Indication: PAIN
     Route: 065
  2. GABAPENTIN. [Concomitant]
     Active Substance: GABAPENTIN
     Dosage: 10 MG TABLETS A HALF TABLET IN THE EVENING
     Route: 065
  3. LANSOPRAZOL [Concomitant]
     Active Substance: LANSOPRAZOLE
     Indication: GASTRITIS
     Route: 065
  4. DULOXALTA [Concomitant]
     Indication: PRODUCT USED FOR UNKNOWN INDICATION
     Route: 065
  5. TECFIDERA [Suspect]
     Active Substance: DIMETHYL FUMARATE
     Route: 048
     Dates: start: 201806
  6. TECFIDERA [Suspect]
     Active Substance: DIMETHYL FUMARATE
     Indication: MULTIPLE SCLEROSIS
     Route: 048
     Dates: start: 201806
  7. BACLOFEN. [Concomitant]
     Active Substance: BACLOFEN
     Indication: MULTIPLE SCLEROSIS
     Route: 065
  8. SPASMEX [Concomitant]
     Indication: BLADDER SPASM
     Dosage: 1/3 IN THE MORNING AND 2/3 IN THE EVENING
     Route: 065
  9. LANSOPRAZOL [Concomitant]
     Active Substance: LANSOPRAZOLE
     Indication: PRODUCT USED FOR UNKNOWN INDICATION
     Route: 065
  10. TECFIDERA [Suspect]
     Active Substance: DIMETHYL FUMARATE
     Route: 048
     Dates: end: 201912
  11. VITAMIN D3 [Concomitant]
     Active Substance: CHOLECALCIFEROL
     Indication: PRODUCT USED FOR UNKNOWN INDICATION
     Route: 065
  12. TECFIDERA [Suspect]
     Active Substance: DIMETHYL FUMARATE
     Route: 048
     Dates: end: 201911
  13. L?TYROXIN [Concomitant]
     Indication: THYROIDECTOMY
     Route: 065
  14. BACLOFEN. [Concomitant]
     Active Substance: BACLOFEN
     Dosage: HALF A TABLET IN THE EVENING
     Route: 065

REACTIONS (4)
  - Chronic kidney disease [Recovered/Resolved with Sequelae]
  - Urinary tract infection [Recovered/Resolved]
  - Toxicity to various agents [Not Recovered/Not Resolved]
  - Renal cyst [Unknown]

NARRATIVE: CASE EVENT DATE: 2019
